FAERS Safety Report 5553724-7 (Version None)
Quarter: 2007Q4

REPORT INFORMATION
  Report Type: 
  Country: None (occurrence: None)
  Receive Date: 20071213
  Receipt Date: 20070713
  Transmission Date: 20080405
  Serious: No
  Sender: FDA-Public Use
  Company Number: US-AMGEN-KDL234318

PATIENT
  Sex: Female

DRUGS (1)
  1. ENBREL [Suspect]
     Indication: PSORIASIS
     Route: 058
     Dates: start: 20070216

REACTIONS (7)
  - ADVERSE DRUG REACTION [None]
  - DEPRESSION [None]
  - GINGIVAL INFECTION [None]
  - INJECTION SITE IRRITATION [None]
  - PHARYNGITIS STREPTOCOCCAL [None]
  - PSORIASIS [None]
  - TOOTH INFECTION [None]
